FAERS Safety Report 16862813 (Version 1)
Quarter: 2019Q3

REPORT INFORMATION
  Report Type: Report from Study
  Country: US (occurrence: US)
  Receive Date: 20190927
  Receipt Date: 20190927
  Transmission Date: 20191005
  Serious: Yes (Other)
  Sender: FDA-Public Use
  Company Number: US-JNJFOC-20190933041

PATIENT
  Age: 66 Year
  Sex: Male

DRUGS (5)
  1. LORATADINE. [Concomitant]
     Active Substance: LORATADINE
     Indication: PREMEDICATION
     Route: 048
  2. TYLENOL [Concomitant]
     Active Substance: ACETAMINOPHEN
     Indication: PREMEDICATION
     Route: 048
  3. SIMPONI ARIA [Suspect]
     Active Substance: GOLIMUMAB
     Indication: PRODUCT USED FOR UNKNOWN INDICATION
     Dosage: 50 MG/4ML INTRAVENOUS SOLUTION, 123 MG INTRAVENOUS INFUSE OVER 30 MINS
     Route: 042
  4. VICODIN [Concomitant]
     Active Substance: ACETAMINOPHEN\HYDROCODONE BITARTRATE
     Route: 065
  5. PREDNISONE. [Concomitant]
     Active Substance: PREDNISONE
     Dosage: TAKE 1 TO 2 TABLETS BY MOUTH DAILY AS NEEDED
     Route: 048

REACTIONS (2)
  - Rheumatoid arthritis [Unknown]
  - Contusion [Unknown]

NARRATIVE: CASE EVENT DATE: 20190828
